FAERS Safety Report 9917034 (Version 1)
Quarter: 2014Q1

REPORT INFORMATION
  Report Type: Spontaneous
  Country: US (occurrence: US)
  Receive Date: 20140221
  Receipt Date: 20140221
  Transmission Date: 20141002
  Serious: Yes (Hospitalization)
  Sender: FDA-Public Use
  Company Number: US-GLAXOSMITHKLINE-A1061948A

PATIENT
  Sex: Male

DRUGS (1)
  1. LOVAZA [Suspect]
     Indication: BLOOD CHOLESTEROL INCREASED
     Dosage: 4CAP PER DAY

REACTIONS (4)
  - Brain operation [Unknown]
  - Cerebral thrombosis [Unknown]
  - Cerebral amyloid angiopathy [Unknown]
  - Cerebral haemorrhage [Unknown]
